FAERS Safety Report 12770546 (Version 1)
Quarter: 2016Q3

REPORT INFORMATION
  Report Type: Spontaneous
  Country: US (occurrence: US)
  Receive Date: 20160921
  Receipt Date: 20160921
  Transmission Date: 20161109
  Serious: Yes (Other)
  Sender: FDA-Public Use
  Company Number: None

PATIENT
  Age: 44 Year
  Sex: Male
  Weight: 87.75 kg

DRUGS (13)
  1. VERAPAMIL ER [Concomitant]
     Active Substance: VERAPAMIL HYDROCHLORIDE
  2. LEXAPRO [Concomitant]
     Active Substance: ESCITALOPRAM OXALATE
  3. PROTONIX (PANTOPRAZOLE SOD DR) [Concomitant]
  4. SEROQUEL XR [Concomitant]
     Active Substance: QUETIAPINE FUMARATE
  5. TUMS (CALCIUM CARBONATE USP) [Concomitant]
  6. ZITHROMAX [Suspect]
     Active Substance: AZITHROMYCIN DIHYDRATE
     Indication: UPPER RESPIRATORY TRACT INFECTION
     Route: 048
     Dates: start: 20160517, end: 20160521
  7. KLONOPIN [Concomitant]
     Active Substance: CLONAZEPAM
  8. LIPITOR [Concomitant]
     Active Substance: ATORVASTATIN CALCIUM
  9. DEPLIN (L METHYLFOLATE) [Concomitant]
  10. ZANTAC [Concomitant]
     Active Substance: RANITIDINE HYDROCHLORIDE
  11. LITHIUM CARBONATE. [Concomitant]
     Active Substance: LITHIUM CARBONATE
  12. PEPTO BISMOL (BISMUTH SUBSALICYLATE) [Concomitant]
  13. RESTORIL [Concomitant]
     Active Substance: TEMAZEPAM

REACTIONS (3)
  - Drug prescribing error [None]
  - Heart rate increased [None]
  - Contraindicated product administered [None]

NARRATIVE: CASE EVENT DATE: 20160517
